FAERS Safety Report 7179249-3 (Version None)
Quarter: 2010Q4

REPORT INFORMATION
  Report Type: 
  Country: None (occurrence: None)
  Receive Date: 20101221
  Receipt Date: 20101213
  Transmission Date: 20110411
  Serious: Yes (Other)
  Sender: FDA-Public Use
  Company Number: JP-ASTELLAS-2010JP007377

PATIENT
  Age: 75 Year
  Sex: Male

DRUGS (8)
  1. VESICARE [Suspect]
     Dosage: 10 MG, UNKNOWN/D
     Route: 048
     Dates: start: 20101102
  2. VESICARE [Suspect]
     Dosage: 5 MG, UNKNOWN/D
     Route: 048
     Dates: start: 20101015, end: 20101101
  3. ARICEPT [Concomitant]
     Dosage: 3 MG, UNKNOWN/D
     Route: 048
     Dates: start: 20100921, end: 20101101
  4. ARICEPT [Concomitant]
     Dosage: 5 MG, UNKNOWN/D
     Route: 048
     Dates: start: 20101102
  5. ASPIRIN [Concomitant]
     Dosage: 100 MG, UNKNOWN/D
     Route: 048
     Dates: start: 20100921
  6. ALESION [Concomitant]
     Dosage: 20 MG, UNKNOWN/D
     Route: 048
     Dates: start: 20101012, end: 20101206
  7. ZYRTEC [Concomitant]
     Dosage: 10 MG, UNKNOWN/D
     Route: 048
     Dates: start: 20101207
  8. MADOPAR [Concomitant]
     Dosage: UNK
     Route: 048

REACTIONS (1)
  - DYSSTASIA [None]
